FAERS Safety Report 8057337 (Version 3)
Quarter: 2012Q4

REPORT INFORMATION
  Report Type: Report from Study
  Country: GR (occurrence: GR)
  Receive Date: 20110727
  Receipt Date: 20121221
  Transmission Date: 20130627
  Serious: Yes (Hospitalization)
  Sender: FDA-Public Use
  Company Number: GR-PFIZER INC-2011160540

PATIENT
  Age: 46 Year
  Sex: Male
  Weight: 84 kg

DRUGS (12)
  1. TEMSIROLIMUS [Suspect]
     Indication: PANCREATIC CANCER METASTATIC
     Dosage: 20 mg, weekly
     Route: 042
     Dates: start: 20110207, end: 20110214
  2. GEMZAR [Suspect]
     Indication: PANCREATIC CARCINOMA METASTATIC
     Dosage: 1600 mg, cyclic (day 1 and day 14 every 4 weeks)
     Route: 042
     Dates: start: 20110207
  3. T4 [Concomitant]
     Indication: HYPOTHYROIDISM
     Dosage: 100 mg, 1x/day
     Route: 048
  4. SALOSPIR [Concomitant]
     Indication: PROPHYLAXIS NOS
     Dosage: 100 mg, 1x/day
     Route: 048
  5. CYMBALTA [Concomitant]
     Indication: DEPRESSION
     Dosage: 1 DF, 1x/day
     Route: 048
  6. NEXIUM [Concomitant]
     Indication: PROPHYLACTIC
     Dosage: 20 mg, 1x/day
     Route: 048
     Dates: start: 20110207
  7. MERONEM [Concomitant]
     Indication: FEVER
     Dosage: 2 g, 3x/day
     Route: 042
     Dates: start: 20110225
  8. DUROGESIC [Concomitant]
     Indication: PAIN
     Dosage: 1 patch of 100 mg, every 3 days
     Route: 062
     Dates: start: 20110221
  9. FLAGYL [Concomitant]
     Indication: FEVER
     Dosage: 500 mg, 1X3
     Dates: start: 20110221, end: 20110302
  10. ZINACEF [Concomitant]
     Indication: FEVER
     Dosage: 1500 mg, 1x3
     Route: 042
     Dates: start: 20110221, end: 20110225
  11. ZYVODIX [Concomitant]
     Indication: FEVER
     Dosage: 600 mg, 1x2
     Dates: start: 20110225, end: 20110309
  12. MORPHINE [Concomitant]
     Indication: PAIN
     Dosage: 1/2 ampule, 1x1
     Route: 058
     Dates: start: 20110221, end: 20110311

REACTIONS (2)
  - Blood bilirubin increased [Recovered/Resolved]
  - Bile duct obstruction [Recovered/Resolved]
